FAERS Safety Report 9868067 (Version 4)
Quarter: 2014Q1

REPORT INFORMATION
  Report Type: Report from Study
  Country: CN (occurrence: CN)
  Receive Date: 20140204
  Receipt Date: 20140326
  Transmission Date: 20141002
  Serious: Yes (Life-Threatening, Hospitalization)
  Sender: FDA-Public Use
  Company Number: CN-ROCHE-1316508

PATIENT
  Age: 64 Year
  Sex: Female

DRUGS (24)
  1. PERTUZUMAB [Suspect]
     Indication: HER-2 POSITIVE BREAST CANCER
     Dosage: LOADING DOSE, DATE OF LAST DOSE PRIOR TO SAE: 21/NOV/2013
     Route: 042
     Dates: start: 20131121
  2. TRASTUZUMAB [Suspect]
     Indication: HER-2 POSITIVE BREAST CANCER
     Dosage: LOADING DOSE, DATE OF LAST DOSE PRIOR TO SAE: 22/NOV/2013
     Route: 042
     Dates: start: 20131122
  3. DOCETAXEL [Suspect]
     Indication: HER-2 POSITIVE BREAST CANCER
     Dosage: DATE OF LAST DOSE PRIOR TO EVENT: 29/NOV/2013
     Route: 042
     Dates: start: 20131122
  4. LACTULOSE [Concomitant]
     Route: 048
     Dates: start: 20131217, end: 20131219
  5. MUCOPOLYSACCHARIDE POLYSULPHATE [Concomitant]
     Route: 065
     Dates: start: 20131121
  6. DEXAMETHASONE [Concomitant]
     Route: 065
     Dates: start: 20131122, end: 20131122
  7. DEXAMETHASONE [Concomitant]
     Route: 065
     Dates: start: 20131128
  8. DEXAMETHASONE [Concomitant]
     Route: 065
     Dates: start: 20131212, end: 20131214
  9. METOPROLOL TARTRATE [Concomitant]
     Indication: SINUS TACHYCARDIA
     Route: 065
     Dates: start: 20131122, end: 20131122
  10. METOPROLOL TARTRATE [Concomitant]
     Route: 065
     Dates: start: 20131205
  11. TROPISETRON HYDROCHLORIDE [Concomitant]
     Indication: PROPHYLAXIS OF NAUSEA AND VOMITING
     Route: 065
     Dates: start: 20131122, end: 20131122
  12. TROPISETRON HYDROCHLORIDE [Concomitant]
     Route: 065
     Dates: start: 20131129, end: 20131129
  13. TROPISETRON HYDROCHLORIDE [Concomitant]
     Route: 065
     Dates: start: 20131213, end: 20131213
  14. TROPISETRON HYDROCHLORIDE [Concomitant]
     Route: 065
     Dates: start: 20131224, end: 20131224
  15. CHLORHEXIDINE GLUCONATE [Concomitant]
     Indication: PROPHYLAXIS
     Route: 065
     Dates: start: 20131128
  16. CHLORHEXIDINE GLUCONATE [Concomitant]
     Route: 065
     Dates: start: 20131206, end: 20131225
  17. LORATADINE [Concomitant]
     Route: 065
     Dates: start: 20131206, end: 20131215
  18. ZOLEDRONIC ACID [Concomitant]
     Route: 065
     Dates: start: 20131209, end: 20131209
  19. INDOMETACIN [Concomitant]
     Route: 065
     Dates: start: 20131209, end: 20131209
  20. OMEPRAZOLE/OMEPRAZOLE SODIUM [Concomitant]
     Route: 065
     Dates: start: 20131213, end: 20131213
  21. OMEPRAZOLE/OMEPRAZOLE SODIUM [Concomitant]
     Route: 065
     Dates: start: 20131224, end: 20131224
  22. GLUTATHIONE SODIUM [Concomitant]
     Route: 065
     Dates: start: 20131213, end: 20131213
  23. GLUTATHIONE SODIUM [Concomitant]
     Route: 065
     Dates: start: 20131224, end: 20131224
  24. PANTOPRAZOLE SODIUM [Concomitant]
     Route: 065
     Dates: start: 20131218, end: 20131220

REACTIONS (1)
  - Bone marrow failure [Recovered/Resolved]
